FAERS Safety Report 19486222 (Version 1)
Quarter: 2021Q3

REPORT INFORMATION
  Report Type: Spontaneous
  Country: US (occurrence: US)
  Receive Date: 20210702
  Receipt Date: 20210702
  Transmission Date: 20211014
  Serious: No
  Sender: FDA-Public Use
  Company Number: US-009507513-2106USA007965

PATIENT
  Age: 78 Year
  Sex: Male

DRUGS (2)
  1. KEYTRUDA [Suspect]
     Active Substance: PEMBROLIZUMAB
     Indication: BONE CANCER
     Dosage: UNK, Q3W
     Route: 042
     Dates: start: 202011
  2. PREDNISONE. [Interacting]
     Active Substance: PREDNISONE
     Indication: ARTHRALGIA

REACTIONS (3)
  - Drug interaction [Unknown]
  - Arthralgia [Not Recovered/Not Resolved]
  - Thyroid hormones increased [Not Recovered/Not Resolved]

NARRATIVE: CASE EVENT DATE: 202103
